FAERS Safety Report 13736964 (Version 2)
Quarter: 2017Q3

REPORT INFORMATION
  Report Type: Report from Study
  Country: US (occurrence: US)
  Receive Date: 20170710
  Receipt Date: 20170811
  Transmission Date: 20171127
  Serious: Yes (Death)
  Sender: FDA-Public Use
  Company Number: US-PFIZER INC-2017292690

PATIENT

DRUGS (2)
  1. TH-302 [Suspect]
     Active Substance: EVOFOSFAMIDE
     Indication: SARCOMA METASTATIC
     Dosage: 300 MG/M2, CYCLIC (FOR 30-60 MIN ON DAY 1 AND DAY 8 OF EVERY 21-DAY CYCLE UP TO SIX CYCLES)
     Route: 042
  2. DOXORUBICIN HCL [Suspect]
     Active Substance: DOXORUBICIN HYDROCHLORIDE
     Indication: SARCOMA METASTATIC
     Dosage: 75 MG/M2, EVERY 3 WEEKS

REACTIONS (1)
  - Sepsis [Fatal]
